FAERS Safety Report 9745118 (Version 1)
Quarter: 2013Q4

REPORT INFORMATION
  Report Type: Spontaneous
  Country: CA (occurrence: CA)
  Receive Date: 20131211
  Receipt Date: 20131211
  Transmission Date: 20140711
  Serious: Yes (Other)
  Sender: FDA-Public Use
  Company Number: CA-AMGEN-CANSP2013086529

PATIENT
  Age: 52 Year
  Sex: Female
  Weight: 88 kg

DRUGS (13)
  1. ENBREL [Suspect]
     Indication: PRODUCT USED FOR UNKNOWN INDICATION
     Dosage: UNK UNK, QWK
     Route: 058
  2. ACTONEL [Concomitant]
     Dosage: UNK
  3. CARBOCAL D [Concomitant]
     Dosage: UNK
  4. COVERSYL                           /00790702/ [Concomitant]
     Dosage: UNK
  5. EZETROL [Concomitant]
     Dosage: UNK
  6. FOLIC ACID [Concomitant]
     Dosage: UNK
  7. LIPIDIL EZ [Concomitant]
     Dosage: UNK
  8. METHOTREXATE [Concomitant]
     Dosage: UNK
  9. PANTOLOC                           /01263204/ [Concomitant]
     Dosage: UNK
  10. PLAQUENIL                          /00072602/ [Concomitant]
     Dosage: UNK
  11. PREDNISONE [Concomitant]
     Dosage: UNK
  12. SPIRIVA [Concomitant]
     Dosage: UNK
  13. SYMBICORT [Concomitant]
     Dosage: UNK, 200 TURBUHALER

REACTIONS (1)
  - Lichenoid keratosis [Unknown]
